FAERS Safety Report 8047726-9 (Version None)
Quarter: 2012Q1

REPORT INFORMATION
  Report Type: 
  Country: None (occurrence: None)
  Receive Date: 20120116
  Receipt Date: 20120105
  Transmission Date: 20120608
  Serious: Yes (Hospitalization, Other)
  Sender: FDA-Public Use
  Company Number: PHHY2012ES001882

PATIENT
  Age: 46 Year
  Sex: Male

DRUGS (10)
  1. HALOPERIDOL [Concomitant]
     Dosage: UNK UKN, UNK
  2. QUETIAPINE [Concomitant]
     Dosage: UNK UKN, UNK
  3. CLOZAPINE [Suspect]
     Dosage: 900 MG/DAY
     Dates: start: 20101008
  4. CLOZAPINE [Suspect]
     Dosage: 300 MG/DAY
     Dates: start: 20110223
  5. CLOZAPINE [Suspect]
     Indication: SCHIZOPHRENIA, PARANOID TYPE
     Dosage: 300 MG/DAY
  6. OLANZAPINE [Concomitant]
     Dosage: UNK UKN, UNK
  7. PALIPERIDONE [Concomitant]
     Dosage: 15 MG/DAY
  8. LACTITOL [Concomitant]
     Dosage: UNK UKN, UNK
  9. OMEPRAZOLE [Concomitant]
     Dosage: UNK UKN, UNK
  10. CYPROTERONE [Concomitant]
     Dosage: UNK UKN, UNK

REACTIONS (5)
  - CATHETER SITE PHLEBITIS [None]
  - DRUG INEFFECTIVE [None]
  - PSYCHOTIC DISORDER [None]
  - NEUTROPENIA [None]
  - AGRANULOCYTOSIS [None]
